FAERS Safety Report 16489797 (Version 11)
Quarter: 2022Q1

REPORT INFORMATION
  Report Type: Spontaneous
  Country: CA (occurrence: None)
  Receive Date: 20190628
  Receipt Date: 20220321
  Transmission Date: 20220423
  Serious: Yes (Other)
  Sender: FDA-Public Use
  Company Number: CA-ORION CORPORATION ORION PHARMA-TREX2019-2052

PATIENT
  Age: 56 Year
  Sex: Female

DRUGS (78)
  1. METHOTREXATE [Suspect]
     Active Substance: METHOTREXATE
     Indication: Rheumatoid arthritis
     Route: 048
  2. METHOTREXATE [Suspect]
     Active Substance: METHOTREXATE
     Route: 058
  3. METHOTREXATE [Suspect]
     Active Substance: METHOTREXATE
     Route: 058
     Dates: start: 200912
  4. METHOTREXATE [Suspect]
     Active Substance: METHOTREXATE
     Route: 058
     Dates: end: 20140702
  5. METHOTREXATE [Suspect]
     Active Substance: METHOTREXATE
     Route: 065
  6. METHOTREXATE [Suspect]
     Active Substance: METHOTREXATE
     Route: 058
  7. METHOTREXATE [Suspect]
     Active Substance: METHOTREXATE
     Route: 048
  8. METHOTREXATE [Suspect]
     Active Substance: METHOTREXATE
     Route: 048
  9. ENBREL [Suspect]
     Active Substance: ETANERCEPT
     Indication: Rheumatoid arthritis
     Route: 058
     Dates: start: 20110722, end: 201111
  10. SULFASALAZINE [Suspect]
     Active Substance: SULFASALAZINE
     Indication: Rheumatoid arthritis
     Route: 065
  11. SULFASALAZINE [Suspect]
     Active Substance: SULFASALAZINE
     Route: 065
  12. SULFASALAZINE [Suspect]
     Active Substance: SULFASALAZINE
     Route: 065
  13. XELJANZ [Suspect]
     Active Substance: TOFACITINIB CITRATE
     Indication: Rheumatoid arthritis
     Route: 048
     Dates: start: 20150217
  14. XELJANZ [Suspect]
     Active Substance: TOFACITINIB CITRATE
     Route: 048
     Dates: start: 20150428
  15. XELJANZ [Suspect]
     Active Substance: TOFACITINIB CITRATE
     Route: 048
  16. RITUXAN [Suspect]
     Active Substance: RITUXIMAB
     Indication: Rheumatoid arthritis
     Dosage: 1/2
     Route: 065
     Dates: start: 20120528
  17. RITUXAN [Suspect]
     Active Substance: RITUXIMAB
     Route: 042
  18. RITUXAN [Suspect]
     Active Substance: RITUXIMAB
     Route: 065
     Dates: start: 20120528
  19. RITUXAN [Suspect]
     Active Substance: RITUXIMAB
     Route: 042
  20. RITUXAN [Suspect]
     Active Substance: RITUXIMAB
     Route: 065
     Dates: start: 20120528
  21. SIMPONI [Suspect]
     Active Substance: GOLIMUMAB
     Indication: Rheumatoid arthritis
     Route: 065
     Dates: start: 20130513, end: 201401
  22. SIMPONI [Suspect]
     Active Substance: GOLIMUMAB
     Route: 058
  23. SIMPONI [Suspect]
     Active Substance: GOLIMUMAB
     Route: 058
  24. SIMPONI [Suspect]
     Active Substance: GOLIMUMAB
     Route: 058
  25. SIMPONI [Suspect]
     Active Substance: GOLIMUMAB
     Route: 058
  26. SIMPONI [Suspect]
     Active Substance: GOLIMUMAB
     Route: 058
  27. ORENCIA [Suspect]
     Active Substance: ABATACEPT
     Indication: Rheumatoid arthritis
     Route: 058
     Dates: start: 201405, end: 201501
  28. ORENCIA [Suspect]
     Active Substance: ABATACEPT
     Route: 058
  29. ORENCIA [Suspect]
     Active Substance: ABATACEPT
     Route: 058
  30. ORENCIA [Suspect]
     Active Substance: ABATACEPT
     Route: 042
  31. ACTEMRA [Suspect]
     Active Substance: TOCILIZUMAB
     Indication: Rheumatoid arthritis
     Route: 065
  32. ACTEMRA [Suspect]
     Active Substance: TOCILIZUMAB
     Route: 065
  33. PREDNISONE [Suspect]
     Active Substance: PREDNISONE
     Indication: Rheumatoid arthritis
     Route: 065
  34. PREDNISONE [Suspect]
     Active Substance: PREDNISONE
     Route: 065
  35. PREDNISONE [Suspect]
     Active Substance: PREDNISONE
     Route: 065
  36. CIMZIA [Suspect]
     Active Substance: CERTOLIZUMAB PEGOL
     Indication: Rheumatoid arthritis
     Route: 058
  37. CIMZIA [Suspect]
     Active Substance: CERTOLIZUMAB PEGOL
     Route: 058
  38. DESOXIMETASONE [Suspect]
     Active Substance: DESOXIMETASONE
     Indication: Rheumatoid arthritis
     Route: 048
  39. DESOXIMETASONE [Suspect]
     Active Substance: DESOXIMETASONE
     Route: 058
  40. FOLIC ACID [Suspect]
     Active Substance: FOLIC ACID
     Indication: Rheumatoid arthritis
     Route: 065
  41. FOLIC ACID [Suspect]
     Active Substance: FOLIC ACID
     Route: 065
  42. FOLIC ACID [Suspect]
     Active Substance: FOLIC ACID
     Route: 065
  43. FOSAMAX [Suspect]
     Active Substance: ALENDRONATE SODIUM
     Indication: Rheumatoid arthritis
     Route: 065
  44. FOSAMAX [Suspect]
     Active Substance: ALENDRONATE SODIUM
     Route: 058
  45. FOSAMAX [Suspect]
     Active Substance: ALENDRONATE SODIUM
     Route: 065
  46. HUMIRA [Suspect]
     Active Substance: ADALIMUMAB
     Indication: Rheumatoid arthritis
     Route: 058
  47. HUMIRA [Suspect]
     Active Substance: ADALIMUMAB
     Route: 058
  48. PHTHALYLSULFATHIAZOLE [Suspect]
     Active Substance: PHTHALYLSULFATHIAZOLE
     Indication: Rheumatoid arthritis
     Route: 065
  49. CETIRIZINE HYDROCHLORIDE [Suspect]
     Active Substance: CETIRIZINE HYDROCHLORIDE
     Indication: Rheumatoid arthritis
     Route: 065
  50. CETIRIZINE HYDROCHLORIDE [Suspect]
     Active Substance: CETIRIZINE HYDROCHLORIDE
     Route: 065
  51. ARAVA [Suspect]
     Active Substance: LEFLUNOMIDE
     Indication: Rheumatoid arthritis
     Route: 048
  52. ARAVA [Suspect]
     Active Substance: LEFLUNOMIDE
     Route: 065
  53. ARAVA [Suspect]
     Active Substance: LEFLUNOMIDE
     Route: 048
  54. ARAVA [Suspect]
     Active Substance: LEFLUNOMIDE
     Route: 065
  55. HYDROXYCHLOROQUINE SULFATE [Suspect]
     Active Substance: HYDROXYCHLOROQUINE SULFATE
     Indication: Rheumatoid arthritis
     Route: 048
     Dates: start: 200912
  56. HYDROXYCHLOROQUINE SULFATE [Suspect]
     Active Substance: HYDROXYCHLOROQUINE SULFATE
     Route: 065
  57. HYDROXYCHLOROQUINE SULFATE [Suspect]
     Active Substance: HYDROXYCHLOROQUINE SULFATE
     Route: 065
     Dates: start: 200912
  58. CETIRIZINE HYDROCHLORIDE [Suspect]
     Active Substance: CETIRIZINE HYDROCHLORIDE
     Indication: Rheumatoid arthritis
     Route: 065
  59. CETIRIZINE HYDROCHLORIDE [Suspect]
     Active Substance: CETIRIZINE HYDROCHLORIDE
     Route: 065
  60. PREDNISONE [Suspect]
     Active Substance: PREDNISONE
     Indication: Rheumatoid arthritis
     Route: 065
  61. PREDNISONE [Suspect]
     Active Substance: PREDNISONE
     Route: 042
  62. REMICADE [Suspect]
     Active Substance: INFLIXIMAB
     Indication: Rheumatoid arthritis
     Route: 042
  63. REMICADE [Suspect]
     Active Substance: INFLIXIMAB
     Route: 042
  64. CETIRIZINE [Suspect]
     Active Substance: CETIRIZINE HYDROCHLORIDE
     Indication: Rheumatoid arthritis
     Route: 065
  65. RITUXIMAB [Suspect]
     Active Substance: RITUXIMAB
     Indication: Rheumatoid arthritis
     Route: 042
  66. CORTISONE ACETATE [Suspect]
     Active Substance: CORTISONE ACETATE
     Indication: Product used for unknown indication
     Route: 061
  67. NAPROSYN [Suspect]
     Active Substance: NAPROXEN
     Indication: Rheumatoid arthritis
     Route: 065
  68. NAPROSYN [Suspect]
     Active Substance: NAPROXEN
     Route: 065
  69. CELEBREX [Suspect]
     Active Substance: CELECOXIB
     Indication: Rheumatoid arthritis
     Route: 065
     Dates: start: 200909
  70. PLAQUENIL [Suspect]
     Active Substance: HYDROXYCHLOROQUINE SULFATE
     Indication: Rheumatoid arthritis
     Route: 065
  71. PLAQUENIL [Suspect]
     Active Substance: HYDROXYCHLOROQUINE SULFATE
     Route: 065
  72. PLAQUENIL [Suspect]
     Active Substance: HYDROXYCHLOROQUINE SULFATE
     Route: 065
  73. TOCILIZUMAB [Suspect]
     Active Substance: TOCILIZUMAB
     Indication: Product used for unknown indication
     Route: 065
  74. HYDROXYCHLOROQUINE [Suspect]
     Active Substance: HYDROXYCHLOROQUINE
     Indication: Rheumatoid arthritis
     Route: 065
  75. LEFLUNOMIDE [Suspect]
     Active Substance: LEFLUNOMIDE
     Indication: Rheumatoid arthritis
     Route: 065
  76. NAPROSYN [Concomitant]
     Active Substance: NAPROXEN
     Indication: Rheumatoid arthritis
     Route: 065
  77. NAPROSYN [Concomitant]
     Active Substance: NAPROXEN
     Route: 065
  78. CELEBREX [Concomitant]
     Active Substance: CELECOXIB
     Indication: Rheumatoid arthritis
     Route: 065
     Dates: start: 200909

REACTIONS (24)
  - Drug ineffective [Not Recovered/Not Resolved]
  - Contraindicated product administered [Not Recovered/Not Resolved]
  - Intentional product use issue [Not Recovered/Not Resolved]
  - Drug intolerance [Not Recovered/Not Resolved]
  - Nausea [Not Recovered/Not Resolved]
  - Abdominal pain [Not Recovered/Not Resolved]
  - Dizziness [Not Recovered/Not Resolved]
  - Synovitis [Not Recovered/Not Resolved]
  - Oedema [Not Recovered/Not Resolved]
  - Rheumatoid arthritis [Not Recovered/Not Resolved]
  - Fibromyalgia [Not Recovered/Not Resolved]
  - Abdominal discomfort [Not Recovered/Not Resolved]
  - Alopecia [Not Recovered/Not Resolved]
  - Fatigue [Not Recovered/Not Resolved]
  - Glossodynia [Not Recovered/Not Resolved]
  - Hand deformity [Not Recovered/Not Resolved]
  - Hip arthroplasty [Not Recovered/Not Resolved]
  - Knee arthroplasty [Not Recovered/Not Resolved]
  - Pain [Not Recovered/Not Resolved]
  - Pemphigus [Not Recovered/Not Resolved]
  - Swelling [Not Recovered/Not Resolved]
  - Systemic lupus erythematosus [Not Recovered/Not Resolved]
  - Wound [Not Recovered/Not Resolved]
  - Arthropathy [Not Recovered/Not Resolved]

NARRATIVE: CASE EVENT DATE: 20150101
